FAERS Safety Report 19373062 (Version 1)
Quarter: 2021Q2

REPORT INFORMATION
  Report Type: Spontaneous
  Country: US (occurrence: US)
  Receive Date: 20210604
  Receipt Date: 20210604
  Transmission Date: 20210717
  Serious: Yes (Hospitalization, Disabling, Other)
  Sender: FDA-Public Use
  Company Number: None

PATIENT
  Age: 46 Year
  Sex: Female
  Weight: 67.5 kg

DRUGS (3)
  1. PHENTERMINE. [Suspect]
     Active Substance: PHENTERMINE
     Indication: WEIGHT CONTROL
     Dosage: ?          QUANTITY:1 TABLETS AND CAPS;?
     Route: 048
     Dates: start: 20191101, end: 20200612
  2. TOPIRAMATE. [Suspect]
     Active Substance: TOPIRAMATE
  3. VITAMINS [Concomitant]
     Active Substance: VITAMINS

REACTIONS (9)
  - Emotional disorder [None]
  - Insomnia [None]
  - Musculoskeletal stiffness [None]
  - Heart rate irregular [None]
  - Balance disorder [None]
  - Speech disorder [None]
  - Eye pain [None]
  - Hypoaesthesia [None]
  - Headache [None]

NARRATIVE: CASE EVENT DATE: 20191101
